FAERS Safety Report 9645331 (Version 2)
Quarter: 2013Q4

REPORT INFORMATION
  Report Type: Report from Study
  Country: FR (occurrence: FR)
  Receive Date: 20131025
  Receipt Date: 20131025
  Transmission Date: 20140711
  Serious: Yes (Other)
  Sender: FDA-Public Use
  Company Number: FR-CELGENEUS-056-C4047-13042754

PATIENT
  Age: 74 Year
  Sex: Female
  Weight: 88 kg

DRUGS (4)
  1. CC-4047 [Suspect]
     Indication: PLASMA CELL MYELOMA
     Dosage: 4 MILLIGRAM
     Route: 048
     Dates: start: 20121211, end: 20130107
  2. CC-4047 [Suspect]
     Dosage: 3 MILLIGRAM
     Route: 048
     Dates: start: 20130315
  3. DEXAMETHASONE [Concomitant]
     Indication: PRODUCT USED FOR UNKNOWN INDICATION
     Dosage: 20 MILLIGRAM
     Route: 065
  4. ASPEGIC [Concomitant]
     Indication: PROPHYLAXIS
     Dosage: 100 GRAM
     Route: 065

REACTIONS (6)
  - Fracture [Unknown]
  - Leukopenia [Recovered/Resolved]
  - Anaemia [Unknown]
  - Platelet count abnormal [Unknown]
  - Asthenia [Recovered/Resolved]
  - Immunoglobulins increased [Unknown]
